FAERS Safety Report 9516018 (Version 2)
Quarter: 2013Q3

REPORT INFORMATION
  Report Type: Spontaneous
  Country: JP (occurrence: JP)
  Receive Date: 20130911
  Receipt Date: 20130911
  Transmission Date: 20140515
  Serious: Yes (Other)
  Sender: FDA-Public Use
  Company Number: JP-JNJFOC-20130816396

PATIENT
  Age: 85 Year
  Sex: Female

DRUGS (3)
  1. DUROTEP MT [Suspect]
     Indication: CANCER PAIN
     Route: 062
     Dates: end: 20120904
  2. FULCALIQ 1 [Concomitant]
     Indication: PRODUCT USED FOR UNKNOWN INDICATION
     Route: 041
  3. HOKUNALIN [Concomitant]
     Indication: PRODUCT USED FOR UNKNOWN INDICATION
     Route: 065

REACTIONS (1)
  - Depressed level of consciousness [Not Recovered/Not Resolved]
